FAERS Safety Report 7599796-X (Version None)
Quarter: 2011Q3

REPORT INFORMATION
  Report Type: 
  Country: None (occurrence: None)
  Receive Date: 20110711
  Receipt Date: 20110701
  Transmission Date: 20111222
  Serious: Yes (Other)
  Sender: FDA-Public Use
  Company Number: US-US-EMD SERONO, INC.-230411J10USA

PATIENT
  Sex: Female

DRUGS (6)
  1. LEVOXYL [Concomitant]
     Indication: HYPOTHYROIDISM
  2. MOTRIN [Concomitant]
  3. TYLENOL PM [Concomitant]
     Indication: HEADACHE
  4. TYLENOL PM [Concomitant]
     Indication: PREMEDICATION
  5. VITAMIN TAB [Concomitant]
  6. REBIF [Suspect]
     Indication: MULTIPLE SCLEROSIS
     Route: 058
     Dates: start: 20041228

REACTIONS (1)
  - SYNOVIAL CYST [None]
